FAERS Safety Report 8279120-X (Version None)
Quarter: 2012Q2

REPORT INFORMATION
  Report Type: 
  Country: None (occurrence: None)
  Receive Date: 20120412
  Receipt Date: 20110823
  Transmission Date: 20120825
  Serious: No
  Sender: FDA-Public Use
  Company Number: US-ASTRAZENECA-2011SE21530

PATIENT
  Age: 82 Year
  Sex: Female

DRUGS (3)
  1. LOSARTAN POTASSIUM [Concomitant]
  2. NEXIUM [Suspect]
     Route: 048
  3. LISINOPRIL [Suspect]
     Indication: BLOOD PRESSURE
     Route: 048

REACTIONS (6)
  - GASTROOESOPHAGEAL REFLUX DISEASE [None]
  - LARYNGITIS [None]
  - VOCAL CORD DISORDER [None]
  - DRUG DOSE OMISSION [None]
  - COUGH [None]
  - DYSPHONIA [None]
